FAERS Safety Report 18035649 (Version 11)
Quarter: 2021Q3

REPORT INFORMATION
  Report Type: Report from Study
  Country: JP (occurrence: JP)
  Receive Date: 20200717
  Receipt Date: 20210713
  Transmission Date: 20211014
  Serious: Yes (Death, Hospitalization)
  Sender: FDA-Public Use
  Company Number: JP-ROCHE-2632187

PATIENT
  Age: 78 Year
  Sex: Male
  Weight: 62.8 kg

DRUGS (19)
  1. TAKECAB [Concomitant]
     Active Substance: VONOPRAZAN FUMARATE
     Indication: PROPHYLAXIS
     Dosage: THE DOSE INTERVAL: BEGINNING OF DOSAGE DAY AFTER THE BREAKFAST: BEFORE ACQUIRING AGREEMENT
     Route: 048
  2. FEBURIC [Concomitant]
     Active Substance: FEBUXOSTAT
     Indication: HYPERURICAEMIA
     Dosage: THE DOSE INTERVAL: BEGINNING OF DOSAGE DAY AFTER THE SUPPER: BEFORE ACQUIRING AGREEMENT
     Route: 048
     Dates: end: 20200618
  3. LULICON [Concomitant]
     Active Substance: LULICONAZOLE
     Indication: TINEA PEDIS
     Dosage: SINGLE USE
     Route: 061
     Dates: start: 20200206
  4. JARDIANCE [Concomitant]
     Active Substance: EMPAGLIFLOZIN
     Indication: TYPE 2 DIABETES MELLITUS
     Dosage: THE DOSE INTERVAL: THE MORNING AND BEGINNING OF DOSAGE DAY: BEFORE ACQUIRING AGREEMENT
     Route: 048
  5. RANMARK [Concomitant]
     Active Substance: DENOSUMAB
     Indication: BONE LESION
     Route: 058
     Dates: start: 20200201
  6. TRULICITY [Concomitant]
     Active Substance: DULAGLUTIDE
     Indication: TYPE 2 DIABETES MELLITUS
     Route: 058
     Dates: start: 20200219
  7. NARUSUS [Concomitant]
     Active Substance: HYDROMORPHONE HYDROCHLORIDE
     Indication: BACK PAIN
     Dosage: THE DOSE INTERVAL: BEFORE RETIRING AND BEGINNING OF DOSAGE DAY: BEFORE ACQUIRING AGREEMENT
     Route: 048
  8. CLENAFIN [Concomitant]
     Active Substance: EFINACONAZOLE
     Indication: DERMATOPHYTOSIS OF NAIL
     Dosage: SINGLE USE
     Route: 061
     Dates: start: 20200206
  9. ETOPOSIDE. [Suspect]
     Active Substance: ETOPOSIDE
     Indication: SMALL CELL LUNG CANCER
     Dosage: DOSE INTERVAL: EACH CYCLE DAY1?DAY3.
     Route: 041
     Dates: start: 20200212, end: 20200417
  10. BAYASPIRIN [Concomitant]
     Active Substance: ASPIRIN
     Indication: THROMBOSIS PROPHYLAXIS
     Dosage: THE DOSE INTERVAL: BEGINNING OF DOSAGE DAY AFTER THE BREAKFAST: BEFORE ACQUIRING AGREEMENT
     Route: 048
     Dates: end: 20200619
  11. AMLODIPINE [Concomitant]
     Active Substance: AMLODIPINE BESYLATE
     Indication: HYPERTENSION
     Dosage: THE DOSE INTERVAL: BEGINNING OF DOSAGE DAY AFTER THE BREAKFAST: BEFORE ACQUIRING AGREEMENT
     Route: 048
  12. BEVACIZUMAB. [Suspect]
     Active Substance: BEVACIZUMAB
     Indication: SMALL CELL LUNG CANCER
     Dosage: DATE OF MOST RECENT DOSE OF BEVACIZUMAB PRIOR TO SAE ONSET: 29/MAY/2020.
     Route: 042
     Dates: start: 20200212
  13. ATEZOLIZUMAB. [Suspect]
     Active Substance: ATEZOLIZUMAB
     Indication: SMALL CELL LUNG CANCER
     Dosage: DATE OF MOST RECENT DOSE OF ATEZOLIZUMAB PRIOR TO SAE ONSET: 29/MAY/2020
     Route: 041
     Dates: start: 20200212
  14. NOVAMIN (JAPAN) [Concomitant]
     Indication: PREMEDICATION
     Route: 065
  15. EVIPROSTAT (JAPAN) [Concomitant]
     Indication: BENIGN PROSTATIC HYPERPLASIA
     Dosage: THE DOSE INTERVAL: AFTER EVERY MEAL, BEGINNING OF DOSAGE DAY: BEFORE ACQUIRING AGREEMENT
     Route: 048
  16. AVOLVE [Concomitant]
     Active Substance: DUTASTERIDE
     Indication: BENIGN PROSTATIC HYPERPLASIA
     Dosage: THE DOSE INTERVAL: THE MORNING AND BEGINNING OF DOSAGE DAY: BEFORE ACQUIRING AGREEMENT
     Route: 048
  17. XALATAN [Concomitant]
     Active Substance: LATANOPROST
     Indication: GLAUCOMA
     Dosage: UNCERTAIN DOSAGE AND THE DOSE INTERVAL: THE MORNING AND BEGINNING OF DOSAGE DAY: BEFORE ACQUIRING AG
     Route: 047
  18. CARBOPLATIN. [Suspect]
     Active Substance: CARBOPLATIN
     Indication: SMALL CELL LUNG CANCER
     Route: 041
     Dates: start: 20200212, end: 20200415
  19. DENOTAS [Concomitant]
     Active Substance: CALCIUM CARBONATE\CHOLECALCIFEROL\MAGNESIUM CARBONATE
     Indication: PROPHYLAXIS
     Dosage: THE DOSE INTERVAL: AFTER THE BREAKFAST
     Route: 048
     Dates: start: 20200201

REACTIONS (1)
  - Autoimmune haemolytic anaemia [Recovering/Resolving]

NARRATIVE: CASE EVENT DATE: 20200619
